FAERS Safety Report 25676292 (Version 2)
Quarter: 2025Q3

REPORT INFORMATION
  Report Type: Report from Study
  Country: US (occurrence: US)
  Receive Date: 20250813
  Receipt Date: 20250923
  Transmission Date: 20251020
  Serious: No
  Sender: MALLINCKRODT
  Company Number: US-MALLINCKRODT-MNK202504986

PATIENT
  Sex: Male
  Weight: 280 kg

DRUGS (2)
  1. CORTICOTROPIN [Suspect]
     Active Substance: CORTICOTROPIN
     Indication: Nephrotic syndrome
     Route: 058
     Dates: start: 20250731
  2. CORTICOTROPIN [Suspect]
     Active Substance: CORTICOTROPIN
     Indication: Nephrotic syndrome

REACTIONS (10)
  - Anger [Unknown]
  - Somnolence [Unknown]
  - Blood creatinine decreased [Unknown]
  - Swelling face [Unknown]
  - Eye swelling [Not Recovered/Not Resolved]
  - Peripheral swelling [Not Recovered/Not Resolved]
  - Behaviour disorder [Unknown]
  - Fatigue [Unknown]
  - Decreased appetite [Unknown]
  - Insomnia [Unknown]

NARRATIVE: CASE EVENT DATE: 20250101
